FAERS Safety Report 6782486-0 (Version None)
Quarter: 2010Q2

REPORT INFORMATION
  Report Type: 
  Country: None (occurrence: None)
  Receive Date: 20100616
  Receipt Date: 20100603
  Transmission Date: 20101027
  Serious: Yes (Death)
  Sender: FDA-Public Use
  Company Number: 013608

PATIENT
  Age: 9 Year
  Sex: Male
  Weight: 29.9 kg

DRUGS (1)
  1. METHYLPHENIDATE [Suspect]
     Dosage: 10 MG BID

REACTIONS (1)
  - SUDDEN DEATH [None]
